FAERS Safety Report 4637237-2 (Version None)
Quarter: 2005Q1

REPORT INFORMATION
  Report Type: 
  Country: None (occurrence: None)
  Receive Date: 20050325
  Receipt Date: 20041221
  Transmission Date: 20050727
  Serious: No
  Sender: FDA-Public Use
  Company Number: USA041285238

PATIENT
  Age: 74 Year
  Sex: Female
  Weight: 65 kg

DRUGS (9)
  1. FORTEO [Suspect]
     Indication: OSTEOPOROSIS
     Dosage: 20 UG DAY
     Dates: start: 20041123
  2. LIPITOR [Concomitant]
  3. PLAVIX [Concomitant]
  4. NEURONTIN (GABAPENTIN PFIZER) [Concomitant]
  5. QUININE SULFATE [Concomitant]
  6. ASPIRIN [Concomitant]
  7. CALCIUM CITRATE WITH VITAMIN D [Concomitant]
  8. VIT C TAB [Concomitant]
  9. VITAMIN E [Concomitant]

REACTIONS (5)
  - ARTHRALGIA [None]
  - ASTHENIA [None]
  - INJECTION SITE HAEMORRHAGE [None]
  - MUSCLE SPASMS [None]
  - NIGHT CRAMPS [None]
